FAERS Safety Report 14413896 (Version 1)
Quarter: 2018Q1

REPORT INFORMATION
  Report Type: Spontaneous
  Country: US (occurrence: US)
  Receive Date: 20180118
  Receipt Date: 20180118
  Transmission Date: 20180509
  Serious: Yes (Life-Threatening, Hospitalization)
  Sender: FDA-Public Use
  Company Number: None

PATIENT
  Age: 64 Year
  Sex: Female
  Weight: 35.1 kg

DRUGS (2)
  1. TAGRISSO [Suspect]
     Active Substance: OSIMERTINIB
     Indication: LUNG ADENOCARCINOMA
     Route: 048
     Dates: start: 20171116, end: 20180113
  2. NORCO [Concomitant]
     Active Substance: ACETAMINOPHEN\HYDROCODONE BITARTRATE

REACTIONS (9)
  - Erythema [None]
  - Vasculitis [None]
  - Stevens-Johnson syndrome [None]
  - Skin exfoliation [None]
  - Pain [None]
  - Blister [None]
  - Rash generalised [None]
  - Toxic epidermal necrolysis [None]
  - Therapy cessation [None]

NARRATIVE: CASE EVENT DATE: 20180113
